FAERS Safety Report 19926130 (Version 2)
Quarter: 2021Q4

REPORT INFORMATION
  Report Type: Spontaneous
  Country: CN (occurrence: CN)
  Receive Date: 20211006
  Receipt Date: 20211027
  Transmission Date: 20220303
  Serious: Yes (Hospitalization)
  Sender: FDA-Public Use
  Company Number: CN-ELI_LILLY_AND_COMPANY-CN202109010614

PATIENT
  Age: 63 Year
  Sex: Female
  Weight: 47 kg

DRUGS (6)
  1. HUMALOG MIX50/50 [Suspect]
     Active Substance: INSULIN LISPRO
     Indication: Type 2 diabetes mellitus
     Dosage: 3 U, EACH MORNING
     Route: 058
     Dates: start: 2018
  2. HUMALOG MIX50/50 [Suspect]
     Active Substance: INSULIN LISPRO
     Dosage: 5 U, OTHER (AT NOON)
     Route: 058
     Dates: start: 2018
  3. HUMALOG MIX50/50 [Suspect]
     Active Substance: INSULIN LISPRO
     Dosage: 3 U, EACH EVENING (NIGHT)
     Route: 058
     Dates: start: 2018
  4. HUMALOG MIX50/50 [Suspect]
     Active Substance: INSULIN LISPRO
     Dosage: 2 U, EACH MORNING
     Route: 058
     Dates: start: 2018
  5. HUMALOG MIX50/50 [Suspect]
     Active Substance: INSULIN LISPRO
     Dosage: 5 U, DAILY
     Route: 058
     Dates: start: 2018
  6. HUMALOG MIX50/50 [Suspect]
     Active Substance: INSULIN LISPRO
     Dosage: 2 U, EACH EVENING
     Route: 058
     Dates: start: 2018

REACTIONS (5)
  - Blood glucose abnormal [Unknown]
  - Blood glucose increased [Unknown]
  - Nerve compression [Unknown]
  - Dyspepsia [Unknown]
  - Blood glucose decreased [Unknown]
